FAERS Safety Report 9967497 (Version 2)
Quarter: 2014Q1

REPORT INFORMATION
  Report Type: Report from Study
  Country: US (occurrence: US)
  Receive Date: 20140305
  Receipt Date: 20140305
  Transmission Date: 20141002
  Serious: No
  Sender: FDA-Public Use
  Company Number: US-ABBVIE-13P-163-1128959-00

PATIENT
  Age: 28 Year
  Sex: Male

DRUGS (10)
  1. HUMIRA [Suspect]
     Indication: CROHN^S DISEASE
     Dates: start: 20130722, end: 20130722
  2. HUMIRA [Suspect]
     Dates: start: 20130729, end: 20130729
  3. HUMIRA [Suspect]
  4. OMEPRAZOLE [Concomitant]
     Indication: DYSPEPSIA
  5. PREDNISONE [Concomitant]
     Indication: PRODUCT USED FOR UNKNOWN INDICATION
  6. LORAZEPAM [Concomitant]
     Indication: ANXIETY
  7. ESCITALOPRAM [Concomitant]
     Indication: DEPRESSION
     Dosage: AT BEDTIME
  8. LISINOPRIL [Concomitant]
     Indication: HYPERTENSION
     Dosage: AT BEDTIME
  9. OLANZAPINE [Concomitant]
     Indication: AFFECTIVE DISORDER
     Dosage: BEFORE BEDTIME
  10. SUCRALFATE KENT [Concomitant]
     Indication: GASTRIC ULCER

REACTIONS (15)
  - Injection site papule [Not Recovered/Not Resolved]
  - Injection site papule [Recovered/Resolved]
  - Incorrect dose administered [Recovered/Resolved]
  - Abdominal pain upper [Recovered/Resolved]
  - Diarrhoea [Not Recovered/Not Resolved]
  - Abdominal distension [Recovered/Resolved]
  - Abdominal pain [Not Recovered/Not Resolved]
  - Muscle tightness [Recovered/Resolved]
  - Crohn^s disease [Not Recovered/Not Resolved]
  - Injection site reaction [Recovered/Resolved]
  - Injection site erythema [Recovered/Resolved]
  - Injection site reaction [Not Recovered/Not Resolved]
  - Injection site erythema [Not Recovered/Not Resolved]
  - Injection site pruritus [Recovered/Resolved]
  - Injection site pruritus [Not Recovered/Not Resolved]
